FAERS Safety Report 9426624 (Version 2)
Quarter: 2013Q3

REPORT INFORMATION
  Report Type: Spontaneous
  Country: US (occurrence: US)
  Receive Date: 20130730
  Receipt Date: 20130924
  Transmission Date: 20140515
  Serious: No
  Sender: FDA-Public Use
  Company Number: US-PFIZER INC-2013217410

PATIENT
  Age: 40 Year
  Sex: Male
  Weight: 72.56 kg

DRUGS (3)
  1. ADVIL PM [Suspect]
     Indication: PAIN
     Dosage: UNK, ONCE A DAY
     Route: 048
     Dates: start: 20130404, end: 20130723
  2. ADVIL PM [Suspect]
     Dosage: UNK
  3. ADVIL PM [Suspect]
     Dosage: UNK

REACTIONS (1)
  - Drug ineffective [Unknown]
